FAERS Safety Report 5765106-3 (Version None)
Quarter: 2008Q2

REPORT INFORMATION
  Report Type: 
  Country: None (occurrence: None)
  Receive Date: 20080605
  Receipt Date: 20080521
  Transmission Date: 20081010
  Serious: No
  Sender: FDA-Public Use
  Company Number: 2008BI012043

PATIENT
  Age: 65 Year
  Sex: Male

DRUGS (1)
  1. AVONEX [Suspect]
     Indication: MULTIPLE SCLEROSIS
     Dosage: 30 UG;QW;IM
     Route: 030
     Dates: start: 20030401

REACTIONS (5)
  - APNOEA [None]
  - DYSPNOEA [None]
  - LATEX ALLERGY [None]
  - RASH GENERALISED [None]
  - URINARY TRACT INFECTION [None]
